FAERS Safety Report 6961460-5 (Version None)
Quarter: 2010Q3

REPORT INFORMATION
  Report Type: 
  Country: None (occurrence: None)
  Receive Date: 20100901
  Receipt Date: 20100826
  Transmission Date: 20110219
  Serious: Yes (Disabling)
  Sender: FDA-Public Use
  Company Number: US-BAYER-201031815NA

PATIENT
  Age: 28 Year
  Sex: Female

DRUGS (1)
  1. MIRENA [Suspect]
     Indication: CONTRACEPTION
     Dosage: CONTINUOUS
     Route: 015
     Dates: start: 20081101

REACTIONS (8)
  - ABASIA [None]
  - COORDINATION ABNORMAL [None]
  - DYSPAREUNIA [None]
  - ERYTHEMA [None]
  - GENITAL HAEMORRHAGE [None]
  - PAIN [None]
  - SWELLING [None]
  - VAGINAL DISCHARGE [None]
